FAERS Safety Report 17439211 (Version 2)
Quarter: 2022Q2

REPORT INFORMATION
  Report Type: Other
  Country: US (occurrence: None)
  Receive Date: 20200220
  Receipt Date: 20220606
  Transmission Date: 20220721
  Serious: Yes (Hospitalization, Other)
  Sender: FDA-Public Use
  Company Number: US-ROCHE-2533288

PATIENT
  Sex: Female

DRUGS (3)
  1. HERCEPTIN [Suspect]
     Active Substance: TRASTUZUMAB
     Indication: Breast cancer female
     Dosage: INFUSE 450 MG INTRAVENOUSLY EVERY 21 DAY(S)
     Route: 041
  2. PERJETA [Suspect]
     Active Substance: PERTUZUMAB
     Indication: Product used for unknown indication
     Dosage: INFUSE 420 MG INTRAVENOUSLY EVERY 21 DAY(S)
     Route: 042
  3. DOCETAXEL [Suspect]
     Active Substance: DOCETAXEL
     Indication: Product used for unknown indication
     Route: 065

REACTIONS (16)
  - Cellulitis [Unknown]
  - Neutropenia [Unknown]
  - Pain [Unknown]
  - Magnetic resonance imaging head abnormal [Unknown]
  - Dehydration [Unknown]
  - Migraine [Unknown]
  - Malaise [Unknown]
  - Erythema [Unknown]
  - Oedema [Unknown]
  - Nausea [Unknown]
  - Vomiting [Unknown]
  - Diarrhoea [Unknown]
  - Metastases to lung [Unknown]
  - Bronchitis [Unknown]
  - Lymphatic disorder [Unknown]
  - Bronchial hyperreactivity [Unknown]
